FAERS Safety Report 23735890 (Version 1)
Quarter: 2024Q2

REPORT INFORMATION
  Report Type: Spontaneous
  Country: US (occurrence: None)
  Receive Date: 20240411
  Receipt Date: 20240411
  Transmission Date: 20240716
  Serious: No
  Sender: FDA-Public Use
  Company Number: None

PATIENT
  Age: 6 Day
  Sex: Male
  Weight: 2.97 kg

DRUGS (2)
  1. BEYFORTUS [Suspect]
     Active Substance: NIRSEVIMAB-ALIP
     Indication: Respiratory syncytial virus infection
     Dosage: OTHER FREQUENCY : ONCE;?
     Route: 030
  2. BEYFORTUS [Suspect]
     Active Substance: NIRSEVIMAB-ALIP
     Indication: Prophylaxis

REACTIONS (1)
  - Inappropriate schedule of product administration [None]

NARRATIVE: CASE EVENT DATE: 20240410
